FAERS Safety Report 19966877 (Version 1)
Quarter: 2021Q4

REPORT INFORMATION
  Report Type: Spontaneous
  Country: US (occurrence: US)
  Receive Date: 20211019
  Receipt Date: 20211019
  Transmission Date: 20220303
  Serious: No
  Sender: FDA-Public Use
  Company Number: US-THERATECHNOLOGIES INC.-2021-THE-TES-000269

PATIENT
  Sex: Male

DRUGS (1)
  1. EGRIFTA SV [Suspect]
     Active Substance: TESAMORELIN ACETATE
     Indication: Product used for unknown indication
     Route: 058

REACTIONS (3)
  - Product storage error [Unknown]
  - Product distribution issue [Unknown]
  - Intercepted medication error [Unknown]

NARRATIVE: CASE EVENT DATE: 20211014
